FAERS Safety Report 25942076 (Version 2)
Quarter: 2025Q4

REPORT INFORMATION
  Report Type: Other
  Country: CA (occurrence: CA)
  Receive Date: 20251020
  Receipt Date: 20251113
  Transmission Date: 20260117
  Serious: Yes (Other)
  Sender: AMPHASTAR
  Company Number: CA-Amphastar Pharmaceuticals, Inc.-2186951

PATIENT
  Age: 45 Year
  Sex: Male
  Weight: 88 kg

DRUGS (10)
  1. BAQSIMI [Suspect]
     Active Substance: GLUCAGON
     Indication: Hypoglycaemia
     Dates: start: 20241122, end: 20241122
  2. ADMELOG [Concomitant]
     Active Substance: INSULIN LISPRO
  3. TRESIBA [Concomitant]
     Active Substance: INSULIN DEGLUDEC
  4. TRAZODONE [Concomitant]
     Active Substance: TRAZODONE HYDROCHLORIDE
  5. RAMIPRIL [Concomitant]
     Active Substance: RAMIPRIL
  6. PANTOPRAZOLE [Concomitant]
     Active Substance: PANTOPRAZOLE
  7. NAPROXEN [Concomitant]
     Active Substance: NAPROXEN
  8. METOCLOPRAMIDE HYDROCHLORIDE [Concomitant]
     Active Substance: METOCLOPRAMIDE HYDROCHLORIDE
  9. ESCITALOPRAM [Concomitant]
     Active Substance: ESCITALOPRAM OXALATE
  10. ALPRAZOLAM [Concomitant]
     Active Substance: ALPRAZOLAM

REACTIONS (3)
  - Burning sensation [Recovered/Resolved]
  - Vitreous haemorrhage [Recovered/Resolved]
  - Pain [Recovered/Resolved]

NARRATIVE: CASE EVENT DATE: 20241122
